FAERS Safety Report 10022192 (Version 1)
Quarter: 2014Q1

REPORT INFORMATION
  Report Type: Spontaneous
  Country: RU (occurrence: RU)
  Receive Date: 20140319
  Receipt Date: 20140319
  Transmission Date: 20141002
  Serious: Yes (Death)
  Sender: FDA-Public Use
  Company Number: RU-VIIV HEALTHCARE LIMITED-B0977723A

PATIENT
  Age: 32 Year
  Sex: Male

DRUGS (2)
  1. KIVEXA [Suspect]
     Indication: PRODUCT USED FOR UNKNOWN INDICATION
  2. ISENTRESS [Suspect]
     Indication: PRODUCT USED FOR UNKNOWN INDICATION

REACTIONS (2)
  - Cardiopulmonary failure [Fatal]
  - Pneumonia [Fatal]
